FAERS Safety Report 17534581 (Version 4)
Quarter: 2020Q4

REPORT INFORMATION
  Report Type: Report from Study
  Country: AT (occurrence: AT)
  Receive Date: 20200312
  Receipt Date: 20201223
  Transmission Date: 20210113
  Serious: Yes (Hospitalization, Other)
  Sender: FDA-Public Use
  Company Number: AT-MYLANLABS-2020M1026176

PATIENT
  Age: 54 Year
  Sex: Female
  Weight: 75 kg

DRUGS (20)
  1. TRASTUZUMAB. [Suspect]
     Active Substance: TRASTUZUMAB
     Indication: HER2 POSITIVE BREAST CANCER
     Dosage: MOST RECENT DOSE PRIOR TO THE EVENT: 26/JUN/2018
     Route: 042
     Dates: start: 20180328, end: 20180328
  2. PERTUZUMAB. [Suspect]
     Active Substance: PERTUZUMAB
     Indication: HER2 POSITIVE BREAST CANCER
     Dosage: MOST RECENT DOSE PRIOR TO THE EVENT: 28/MAR/2018, 14/DEC/2018
     Route: 042
     Dates: start: 20180328, end: 20180328
  3. NERATINIB [Suspect]
     Active Substance: NERATINIB
     Indication: BREAST CANCER
     Dosage: 1440 MILLIGRAM, QD
     Route: 048
     Dates: start: 20200108
  4. KYTRIL [Concomitant]
     Active Substance: GRANISETRON HYDROCHLORIDE
     Indication: PRODUCT USED FOR UNKNOWN INDICATION
     Dosage: ONGOING = NOT CHECKED
     Dates: start: 20190628, end: 20190830
  5. PERTUZUMAB. [Suspect]
     Active Substance: PERTUZUMAB
     Dosage: UNK
  6. DEXAMETHASONE. [Concomitant]
     Active Substance: DEXAMETHASONE
     Indication: PRODUCT USED FOR UNKNOWN INDICATION
     Dosage: UNK
     Dates: start: 20190628, end: 20190830
  7. ENTEROBENE [Concomitant]
     Dosage: UNK
     Dates: start: 20200108
  8. CAPECITABINE. [Suspect]
     Active Substance: CAPECITABINE
     Indication: BREAST CANCER
     Dosage: 500 MILLIGRAM
     Route: 048
     Dates: start: 20191126, end: 20191218
  9. PANTOLOC                           /01263201/ [Concomitant]
     Active Substance: PANTOPRAZOLE SODIUM
     Dosage: ONGOING = CHECKED
     Route: 065
     Dates: start: 20191011
  10. TRASTUZUMAB. [Suspect]
     Active Substance: TRASTUZUMAB
     Dosage: 378 MILLIGRAM
     Route: 041
     Dates: start: 20181123, end: 20181123
  11. TRASTUZUMAB EMTANSINE [Suspect]
     Active Substance: ADO-TRASTUZUMAB EMTANSINE
     Dosage: UNK
  12. BEPANTHENE [Concomitant]
     Active Substance: DEXPANTHENOL
     Indication: ONYCHOLYSIS
     Dosage: UNK
     Dates: start: 20180725
  13. XGEVA [Concomitant]
     Active Substance: DENOSUMAB
     Dosage: UNK
     Dates: start: 20191219
  14. TRASTUZUMAB EMTANSINE [Suspect]
     Active Substance: ADO-TRASTUZUMAB EMTANSINE
     Indication: HER2 POSITIVE BREAST CANCER
     Dosage: MOST RECENT DOSE PRIOR TO THE EVENT: 28/JUN/2019, 17/MAY/2019
     Route: 042
     Dates: start: 20190131, end: 20190517
  15. CAL D VITA [Concomitant]
     Dosage: ONGOING = CHECKED
     Route: 065
     Dates: start: 20190425
  16. BEPANTHEN EYE [Concomitant]
     Active Substance: DEXPANTHENOL\HYALURONATE SODIUM
     Indication: CONJUNCTIVITIS
     Dosage: UNK
     Dates: start: 20180619
  17. ABRAXANE [Suspect]
     Active Substance: PACLITAXEL
     Indication: HER2 POSITIVE BREAST CANCER
     Dosage: DOSE ON 08/MAY/2018 MOST RECENT DOSE PRIOR TO THE EVENT: 07/DEC/2018
     Route: 042
     Dates: start: 20180416
  18. NAVELBINE [Suspect]
     Active Substance: VINORELBINE TARTRATE
     Indication: HER2 POSITIVE BREAST CANCER
     Dosage: 50 MICROGRAM (RECENT DOSE: 28/OCT/2019)
     Route: 048
     Dates: start: 20191011
  19. TAXOL [Suspect]
     Active Substance: PACLITAXEL
     Indication: HER2 POSITIVE BREAST CANCER
     Dosage: 147.76 MILLIGRAM (WEEKLY RECENT DOSE ON 09/APR/2018)
     Route: 042
     Dates: start: 20180328, end: 20180409
  20. OCTENISEPT                         /00972101/ [Concomitant]
     Indication: ONYCHOLYSIS
     Dosage: UNK
     Dates: start: 20180725

REACTIONS (6)
  - Off label use [Unknown]
  - Overdose [Unknown]
  - Febrile neutropenia [Recovered/Resolved]
  - Pain of skin [Recovered/Resolved]
  - Stomatitis [Recovered/Resolved]
  - Breast cancer metastatic [Recovering/Resolving]

NARRATIVE: CASE EVENT DATE: 20190920
